FAERS Safety Report 5863954-2 (Version None)
Quarter: 2008Q3

REPORT INFORMATION
  Report Type: 
  Country: None (occurrence: None)
  Receive Date: 20080829
  Receipt Date: 20080827
  Transmission Date: 20090109
  Serious: Yes (Other)
  Sender: FDA-Public Use
  Company Number: US-BRISTOL-MYERS SQUIBB COMPANY-14317135

PATIENT
  Age: 63 Year
  Sex: Female
  Weight: 63 kg

DRUGS (2)
  1. GLUCOPHAGE [Suspect]
     Indication: DIABETES MELLITUS
     Dosage: GLUCOPHAGE (MOST LIKELY 500 MG PER DAY). GLUCOPHAGE WAS TAKEN WITH THE MORNING MEAL.
  2. FOSAMAX [Suspect]
     Indication: BONE DENSITOMETRY
     Dosage: FIRST DOSE OF FOSAMAX WAS TAKEN ON EMPTY STOMACH.

REACTIONS (1)
  - CONVULSION [None]
